FAERS Safety Report 8015957-X (Version None)
Quarter: 2011Q4

REPORT INFORMATION
  Report Type: 
  Country: None (occurrence: None)
  Receive Date: 20111230
  Receipt Date: 20111219
  Transmission Date: 20120403
  Serious: Yes (Other)
  Sender: FDA-Public Use
  Company Number: US-SANOFI-AVENTIS-2011SA081084

PATIENT
  Age: 36 Year
  Sex: Female

DRUGS (1)
  1. ELIGARD [Suspect]
     Route: 065

REACTIONS (9)
  - TACHYPHRENIA [None]
  - CONFUSIONAL STATE [None]
  - OFF LABEL USE [None]
  - LOGORRHOEA [None]
  - MEMORY IMPAIRMENT [None]
  - MANIA [None]
  - DISTURBANCE IN ATTENTION [None]
  - INSOMNIA [None]
  - ELEVATED MOOD [None]
